FAERS Safety Report 5837666-5 (Version None)
Quarter: 2008Q3

REPORT INFORMATION
  Report Type: 
  Country: None (occurrence: None)
  Receive Date: 20080731
  Receipt Date: 20080630
  Transmission Date: 20090109
  Serious: No
  Sender: FDA-Public Use
  Company Number: US200806004052

PATIENT
  Age: 41 Year
  Sex: Female
  Weight: 82.1 kg

DRUGS (3)
  1. BYETTA [Suspect]
     Indication: TYPE 2 DIABETES MELLITUS
     Dosage: 5 UG, 2/D, SUBCUTANEOUS : UNK,2/D, SUBCUTANEOUS
     Route: 058
     Dates: start: 20080422, end: 20080531
  2. BYETTA [Suspect]
     Indication: TYPE 2 DIABETES MELLITUS
     Dosage: 5 UG, 2/D, SUBCUTANEOUS : UNK,2/D, SUBCUTANEOUS
     Route: 058
     Dates: start: 20080101
  3. GLUCOVANCE [Concomitant]

REACTIONS (1)
  - ACRODERMATITIS [None]
